FAERS Safety Report 19487650 (Version 1)
Quarter: 2021Q3

REPORT INFORMATION
  Report Type: Spontaneous
  Country: US (occurrence: US)
  Receive Date: 20210702
  Receipt Date: 20210702
  Transmission Date: 20211014
  Serious: No
  Sender: FDA-Public Use
  Company Number: US-BIODELIVERY SCIENCES INTERNATIONAL-2021BDSI0007

PATIENT
  Age: 68 Year
  Sex: Female
  Weight: 65.83 kg

DRUGS (1)
  1. BUPRENORPHINE. [Suspect]
     Active Substance: BUPRENORPHINE
     Indication: PAIN
     Route: 002
     Dates: start: 20201231

REACTIONS (5)
  - Vomiting [Recovered/Resolved]
  - Product adhesion issue [Unknown]
  - Incorrect route of product administration [Recovered/Resolved]
  - Wrong technique in product usage process [Unknown]
  - Oral administration complication [Unknown]

NARRATIVE: CASE EVENT DATE: 20201231
